FAERS Safety Report 20820178 (Version 9)
Quarter: 2025Q2

REPORT INFORMATION
  Report Type: Report from Study
  Country: US (occurrence: US)
  Receive Date: 20220512
  Receipt Date: 20250609
  Transmission Date: 20250716
  Serious: Yes (Hospitalization, Other)
  Sender: TAKEDA
  Company Number: US-TAKEDA-2022TUS024870

PATIENT
  Age: 58 Year
  Sex: Male
  Weight: 66 kg

DRUGS (16)
  1. HUMAN IMMUNOGLOBULIN G [Suspect]
     Active Substance: HUMAN IMMUNOGLOBULIN G
     Indication: Immunodeficiency common variable
     Dosage: 25 GRAM, Q4WEEKS
  2. EPINEPHRINE [Concomitant]
     Active Substance: EPINEPHRINE
  3. ACETAMINOPHEN [Concomitant]
     Active Substance: ACETAMINOPHEN
  4. VALACYCLOVIR [Concomitant]
     Active Substance: VALACYCLOVIR HYDROCHLORIDE
  5. FOLIC ACID [Concomitant]
     Active Substance: FOLIC ACID
  6. ALLEGRA ALLERGY [Concomitant]
     Active Substance: FEXOFENADINE HYDROCHLORIDE
  7. Afluria quad [Concomitant]
  8. SODIUM CHLORIDE [Concomitant]
     Active Substance: SODIUM CHLORIDE
  9. PRADAXA [Concomitant]
     Active Substance: DABIGATRAN ETEXILATE MESYLATE
  10. DIPHENHYDRAMINE HYDROCHLORIDE [Concomitant]
     Active Substance: DIPHENHYDRAMINE HYDROCHLORIDE
  11. DIPHENHYDRAMINE [Concomitant]
     Active Substance: DIPHENHYDRAMINE
  12. Lmx [Concomitant]
  13. IRON [Concomitant]
     Active Substance: IRON
  14. BORON [Concomitant]
     Active Substance: BORON
  15. LANTUS SOLOSTAR [Concomitant]
     Active Substance: INSULIN GLARGINE
  16. LYUMJEV KWIKPEN [Concomitant]
     Active Substance: INSULIN LISPRO

REACTIONS (13)
  - Pneumonia [Unknown]
  - Dehydration [Unknown]
  - Oesophageal candidiasis [Unknown]
  - Type 1 diabetes mellitus [Unknown]
  - Upper respiratory tract infection [Unknown]
  - Ulcer [Recovered/Resolved]
  - Joint swelling [Recovered/Resolved]
  - Peripheral swelling [Recovering/Resolving]
  - Respiratory tract infection [Not Recovered/Not Resolved]
  - Urinary tract infection [Unknown]
  - Weight decreased [Unknown]
  - Sinusitis [Unknown]
  - Nausea [Unknown]

NARRATIVE: CASE EVENT DATE: 20220327
